FAERS Safety Report 17821825 (Version 1)
Quarter: 2020Q2

REPORT INFORMATION
  Report Type: Report from Study
  Country: None (occurrence: US)
  Receive Date: 20200525
  Receipt Date: 20200525
  Transmission Date: 20200714
  Serious: Yes (Other)
  Sender: FDA-Public Use
  Company Number: US-ABBVIE-20K-163-3297066-00

PATIENT
  Sex: Female

DRUGS (4)
  1. VENCLEXTA [Suspect]
     Active Substance: VENETOCLAX
     Indication: HERPES ZOSTER
     Route: 048
  2. VENCLEXTA [Suspect]
     Active Substance: VENETOCLAX
     Indication: ABNORMAL LOSS OF WEIGHT
  3. VENCLEXTA [Suspect]
     Active Substance: VENETOCLAX
     Indication: NON-HODGKIN^S LYMPHOMA
     Dosage: 6 TABLET BY MOUTH DAILY
     Route: 048
  4. VENCLEXTA [Suspect]
     Active Substance: VENETOCLAX
     Indication: CONJUNCTIVITIS ALLERGIC
     Route: 048

REACTIONS (6)
  - Weight decreased [Unknown]
  - Seasonal allergy [Unknown]
  - Blindness unilateral [Unknown]
  - Herpes zoster [Unknown]
  - Conjunctivitis [Unknown]
  - Off label use [Unknown]
